FAERS Safety Report 15632071 (Version 1)
Quarter: 2018Q4

REPORT INFORMATION
  Report Type: Spontaneous
  Country: US (occurrence: US)
  Receive Date: 20181118
  Receipt Date: 20181118
  Transmission Date: 20190205
  Serious: No
  Sender: FDA-Public Use
  Company Number: None

PATIENT
  Sex: Female

DRUGS (1)
  1. BUDESONIDE. [Suspect]
     Active Substance: BUDESONIDE
     Route: 048
     Dates: start: 20181108, end: 20181116

REACTIONS (3)
  - Diarrhoea [None]
  - Blood pressure increased [None]
  - Manufacturing production issue [None]
